FAERS Safety Report 12443393 (Version 1)
Quarter: 2016Q2

REPORT INFORMATION
  Report Type: Spontaneous
  Country: JP (occurrence: JP)
  Receive Date: 20160607
  Receipt Date: 20160607
  Transmission Date: 20160815
  Serious: Yes (Hospitalization)
  Sender: FDA-Public Use
  Company Number: JP-BAYER-2016-109115

PATIENT
  Age: 16 Year
  Sex: Male

DRUGS (1)
  1. ACETYLSALICYLIC ACID (} 100 MG, FAST RELEASE) [Suspect]
     Active Substance: ASPIRIN
     Indication: SUICIDE ATTEMPT
     Dosage: 486 TABLETS OF 330MG, TOTAL OF 160380MG
     Route: 048

REACTIONS (5)
  - Metabolic acidosis [Recovered/Resolved]
  - Renal tubular disorder [Recovered/Resolved]
  - Suicide attempt [None]
  - Toxicity to various agents [Recovered/Resolved]
  - Intentional overdose [None]
